FAERS Safety Report 8071594-2 (Version None)
Quarter: 2012Q1

REPORT INFORMATION
  Report Type: 
  Country: None (occurrence: None)
  Receive Date: 20120125
  Receipt Date: 20120117
  Transmission Date: 20120608
  Serious: Yes (Hospitalization, Other)
  Sender: FDA-Public Use
  Company Number: US-MILLENNIUM PHARMACEUTICALS, INC.-2011-06562

PATIENT
  Sex: Male
  Weight: 87.982 kg

DRUGS (3)
  1. VELCADE [Suspect]
     Indication: MULTIPLE MYELOMA
     Dosage: 2.7 MG, CYCLIC
     Route: 042
     Dates: start: 20110517, end: 20110929
  2. DEXAMETHASONE [Suspect]
     Indication: MULTIPLE MYELOMA
     Dosage: UNK
  3. CYCLOPHOSPHAMIDE [Suspect]
     Indication: MULTIPLE MYELOMA
     Dosage: UNK MG, CYCLIC
     Route: 048

REACTIONS (6)
  - SYNCOPE [None]
  - HEADACHE [None]
  - HEMIANOPIA HOMONYMOUS [None]
  - ANAL FISTULA [None]
  - PERIRECTAL ABSCESS [None]
  - HAEMORRHOIDAL HAEMORRHAGE [None]
